FAERS Safety Report 9518284 (Version 1)
Quarter: 2013Q3

REPORT INFORMATION
  Report Type: Spontaneous
  Country: US (occurrence: None)
  Receive Date: 20130910
  Receipt Date: 20130910
  Transmission Date: 20140515
  Serious: No
  Sender: FDA-Public Use
  Company Number: None

PATIENT
  Sex: 0

DRUGS (7)
  1. FENTANYL [Suspect]
     Indication: ARTHRITIS
     Dosage: 25 MCG/H 1 PATCH/72HR SKIN PATCH
     Dates: start: 20130805, end: 20130806
  2. ALPRAZOLAN (XANX XR) [Concomitant]
  3. AMITRIPTYLINE (ELAVIL) [Concomitant]
  4. ATORVASTATIN (LIPTOR) [Concomitant]
  5. MULTI VITAMIN [Concomitant]
  6. MIRALAX [Concomitant]
  7. TYLENOL [Concomitant]

REACTIONS (6)
  - Somnolence [None]
  - Amnesia [None]
  - Neck deformity [None]
  - Fall [None]
  - Head injury [None]
  - Limb injury [None]
